FAERS Safety Report 26105996 (Version 1)
Quarter: 2025Q4

REPORT INFORMATION
  Report Type: Report from Study
  Country: US (occurrence: US)
  Receive Date: 20251201
  Receipt Date: 20251201
  Transmission Date: 20260118
  Serious: Yes (Death)
  Sender: ROCHE
  Company Number: US-ROCHE-10000442961

PATIENT
  Age: 55 Year
  Sex: Female

DRUGS (1)
  1. RITUXAN [Suspect]
     Active Substance: RITUXIMAB
     Indication: Myopathy
     Dosage: INFUSE 1000 MG INTRAVENOUSLY ON DAY(S) 1 AND DAY(S) 15 REPEAT AS DIRECTED QUANTITY  500 MG VIAL, 2 R
     Route: 042

REACTIONS (2)
  - Death [Fatal]
  - Off label use [Unknown]
